FAERS Safety Report 8159364-8 (Version None)
Quarter: 2012Q1

REPORT INFORMATION
  Report Type: 
  Country: None (occurrence: None)
  Receive Date: 20120223
  Receipt Date: 20120216
  Transmission Date: 20120608
  Serious: Yes (Other)
  Sender: FDA-Public Use
  Company Number: JP-VERTEX PHARMACEUTICALS INC.-AE-2012-002423

PATIENT
  Age: 62 Year
  Sex: Male

DRUGS (4)
  1. REBETOL [Concomitant]
     Route: 048
     Dates: start: 20120210
  2. GASMOTIN [Concomitant]
     Route: 048
  3. TELAVIC (TELAPREVIR) [Suspect]
     Route: 048
     Dates: start: 20120210
  4. PEG-INTRON [Concomitant]
     Route: 058
     Dates: start: 20120210

REACTIONS (2)
  - BLOOD URIC ACID INCREASED [None]
  - BLOOD CREATININE INCREASED [None]
